FAERS Safety Report 7407954 (Version 6)
Quarter: 2016Q1

REPORT INFORMATION
  Report Type: Report from Study
  Country: JP (occurrence: JP)
  Receive Date: 20100603
  Receipt Date: 20160329
  Transmission Date: 20160526
  Serious: Yes (Life-Threatening, Hospitalization, Other)
  Sender: FDA-Public Use
  Company Number: JP-SHIRE-SPV1-2010-01022

PATIENT
  Age: 59 Year
  Sex: Male

DRUGS (24)
  1. 405 (LANTHANUM CARBONATE) [Suspect]
     Active Substance: LANTHANUM CARBONATE
     Dosage: 1500 MG, 1X/DAY:QD
     Route: 048
     Dates: start: 20100621, end: 20100718
  2. 405 (LANTHANUM CARBONATE) [Suspect]
     Active Substance: LANTHANUM CARBONATE
     Dosage: 750 MG, 1X/DAY:QD
     Route: 048
     Dates: start: 20111230, end: 20140223
  3. 405 (LANTHANUM CARBONATE) [Suspect]
     Active Substance: LANTHANUM CARBONATE
     Dosage: 2250 MG, UNKNOWN (DAY)
     Route: 048
     Dates: start: 20150317
  4. EPOGIN [Concomitant]
     Active Substance: ERYTHROPOIETIN
     Indication: PRODUCT USED FOR UNKNOWN INDICATION
     Dosage: 9000 IU, OTHER (WEEKLY)
     Route: 042
  5. 405 (LANTHANUM CARBONATE) [Suspect]
     Active Substance: LANTHANUM CARBONATE
     Indication: HYPERPHOSPHATAEMIA
     Dosage: 750 MG, 1X/DAY:QD
     Route: 048
     Dates: start: 20090420, end: 20100620
  6. 405 (LANTHANUM CARBONATE) [Suspect]
     Active Substance: LANTHANUM CARBONATE
     Dosage: 2250 MG, 1X/DAY:QD
     Route: 048
     Dates: start: 20100719, end: 20110130
  7. 405 (LANTHANUM CARBONATE) [Suspect]
     Active Substance: LANTHANUM CARBONATE
     Dosage: 750 MG, 1X/DAY:QD
     Route: 048
     Dates: start: 20110131, end: 20110214
  8. CALCIUM CARBONATE. [Concomitant]
     Active Substance: CALCIUM CARBONATE
     Dosage: 3000 MG, UNKNOWN
     Route: 048
  9. URSO [Concomitant]
     Active Substance: URSODIOL
     Indication: PRODUCT USED FOR UNKNOWN INDICATION
     Dosage: 150 MG, UNKNOWN
     Route: 048
  10. FESIN [Concomitant]
     Active Substance: IRON SUCROSE
     Indication: PRODUCT USED FOR UNKNOWN INDICATION
     Dosage: 1 DF, 1X/WEEK
     Route: 042
  11. 405 (LANTHANUM CARBONATE) [Suspect]
     Active Substance: LANTHANUM CARBONATE
     Dosage: 1500 MG, UNKNOWN (DAY)
     Route: 048
     Dates: start: 20140224, end: 20140316
  12. CALCIUM CARBONATE. [Concomitant]
     Active Substance: CALCIUM CARBONATE
     Dosage: 1500 MG, UNKNOWN
     Route: 048
  13. MUCOSOLVAN [Concomitant]
     Active Substance: AMBROXOL HYDROCHLORIDE
     Indication: PRODUCT USED FOR UNKNOWN INDICATION
     Dosage: 3 DF, UNKNOWN
     Route: 048
  14. RHUBARB DRY EXTRACT [Concomitant]
     Indication: PRODUCT USED FOR UNKNOWN INDICATION
     Dosage: 1.5 G, UNKNOWN
     Route: 048
  15. ROCALTROL [Concomitant]
     Active Substance: CALCITRIOL
     Indication: PRODUCT USED FOR UNKNOWN INDICATION
     Dosage: 0.5 ?G, UNKNOWN
     Route: 048
  16. ROCALTROL [Concomitant]
     Active Substance: CALCITRIOL
     Dosage: 0.25 ?G, UNKNOWN
     Route: 048
  17. CALCIUM CARBONATE. [Concomitant]
     Active Substance: CALCIUM CARBONATE
     Indication: PRODUCT USED FOR UNKNOWN INDICATION
     Dosage: 1500 MG, UNKNOWN
     Route: 048
  18. CALCIUM CARBONATE. [Concomitant]
     Active Substance: CALCIUM CARBONATE
     Dosage: 3000 MG, UNKNOWN
     Route: 048
  19. RENAGEL [Concomitant]
     Active Substance: SEVELAMER HYDROCHLORIDE
     Indication: HYPERPHOSPHATAEMIA
     Dosage: 3000 MG, UNKNOWN
     Route: 048
     Dates: end: 20090503
  20. ONEALFA [Concomitant]
     Active Substance: ALFACALCIDOL
     Indication: PRODUCT USED FOR UNKNOWN INDICATION
     Dosage: 0.25 ?G, UNKNOWN
     Route: 048
  21. FULSTAN [Concomitant]
     Indication: PRODUCT USED FOR UNKNOWN INDICATION
     Dosage: 0.15 ?G, UNKNOWN
     Route: 048
  22. FULSTAN [Concomitant]
     Dosage: 0.15 ?G, UNKNOWN
     Route: 048
  23. PURSENNID                          /00142207/ [Concomitant]
     Active Substance: SENNOSIDES A AND B
     Indication: PRODUCT USED FOR UNKNOWN INDICATION
     Dosage: 12 MG, UNKNOWN
     Route: 048
  24. OMEPRAL                            /00661201/ [Concomitant]
     Active Substance: OMEPRAZOLE
     Indication: PRODUCT USED FOR UNKNOWN INDICATION
     Dosage: 20 MG, UNKNOWN
     Route: 048

REACTIONS (9)
  - Shunt aneurysm [Recovered/Resolved]
  - Lumbar spinal stenosis [Recovering/Resolving]
  - Hepatocellular carcinoma [Recovering/Resolving]
  - Melaena [Recovering/Resolving]
  - Anaemia [Recovering/Resolving]
  - Back pain [Recovering/Resolving]
  - Arthralgia [Recovering/Resolving]
  - Femoral neck fracture [Recovering/Resolving]
  - Osteonecrosis [Unknown]

NARRATIVE: CASE EVENT DATE: 20100112
